FAERS Safety Report 9477877 (Version 2)
Quarter: 2013Q3

REPORT INFORMATION
  Report Type: Spontaneous
  Country: GB (occurrence: GB)
  Receive Date: 20130827
  Receipt Date: 20130827
  Transmission Date: 20140515
  Serious: Yes (Hospitalization, Other)
  Sender: FDA-Public Use
  Company Number: GB-RANBAXY-2006US-02719

PATIENT
  Age: 24 Year
  Sex: Female

DRUGS (1)
  1. ISOTRETINOIN [Suspect]
     Indication: ACNE
     Dosage: 45 MG/DAY (0.5 MG/KG/DAY)
     Route: 065

REACTIONS (2)
  - Anaemia folate deficiency [Recovered/Resolved]
  - Anaemia vitamin B12 deficiency [Recovered/Resolved]
